FAERS Safety Report 14854578 (Version 1)
Quarter: 2018Q2

REPORT INFORMATION
  Report Type: Spontaneous
  Country: JP (occurrence: JP)
  Receive Date: 20180507
  Receipt Date: 20180507
  Transmission Date: 20180711
  Serious: Yes (Hospitalization)
  Sender: FDA-Public Use
  Company Number: JP-ELI_LILLY_AND_COMPANY-JP201803009733AA

PATIENT
  Sex: Female
  Weight: 47 kg

DRUGS (7)
  1. VENCOLL [Concomitant]
     Active Substance: CASANTHRANOL\DOCUSATE SODIUM
     Dosage: 2 DF, TID
     Route: 048
  2. ARTIST [Concomitant]
     Active Substance: CARVEDILOL
     Dosage: 5 MG, DAILY
     Route: 048
  3. HALCION [Concomitant]
     Active Substance: TRIAZOLAM
     Dosage: 0.25 MG, DAILY
     Route: 048
  4. AMLODIN [Concomitant]
     Active Substance: AMLODIPINE BESYLATE
     Dosage: 5 MG, BID
     Route: 048
  5. METHYCOBAL [Concomitant]
     Active Substance: METHYLCOBALAMIN
     Dosage: 500 UG, BID
     Route: 048
  6. FORTEO [Suspect]
     Active Substance: TERIPARATIDE
     Indication: OSTEOPOROSIS
     Dosage: 20 UG, DAILY
     Route: 058
     Dates: start: 20170131, end: 20180219
  7. LANSOPRAZOLE. [Concomitant]
     Active Substance: LANSOPRAZOLE
     Dosage: 15 MG, DAILY
     Route: 048

REACTIONS (1)
  - Renal impairment [Not Recovered/Not Resolved]
